FAERS Safety Report 4397446-7 (Version None)
Quarter: 2004Q2

REPORT INFORMATION
  Report Type: 
  Country: None (occurrence: None)
  Receive Date: 20040621
  Receipt Date: 20031201
  Transmission Date: 20050107
  Serious: Yes (Death, Other)
  Sender: FDA-Public Use
  Company Number: USA-2003-0011761

PATIENT
  Age: 59 Year
  Sex: Female
  Weight: 56.7 kg

DRUGS (8)
  1. OXYCODONE HYDROCHLORIDE (SIMILAR TO NDA 20-553) (OXYCODONE HYDROCHLORI [Suspect]
     Route: 065
  2. HYDROCODONE BITARTRATE [Suspect]
     Route: 065
  3. DIAZEPAM [Suspect]
     Dosage: UNK UNK, UNK; UNKNOWN
     Route: 065
  4. ACETAMINOPHEN [Suspect]
     Route: 065
  5. CAFFEINE (CAFFEINE) [Suspect]
     Route: 065
  6. IBUPROFEN [Suspect]
     Route: 065
  7. METHYL SALICYLATE (METHYL SALICYLATE) [Suspect]
     Route: 065
  8. ASPIRIN [Suspect]
     Route: 065

REACTIONS (3)
  - ACCIDENTAL OVERDOSE [None]
  - DRUG ABUSER [None]
  - MULTIPLE DRUG OVERDOSE [None]
